FAERS Safety Report 4954919-3 (Version None)
Quarter: 2006Q1

REPORT INFORMATION
  Report Type: 
  Country: None (occurrence: None)
  Receive Date: 20060322
  Receipt Date: 20060308
  Transmission Date: 20060701
  Serious: Yes (Hospitalization)
  Sender: FDA-Public Use
  Company Number: JP200602002283

PATIENT
  Age: 65 Year
  Sex: Male

DRUGS (2)
  1. GEMZAR [Suspect]
     Indication: PANCREATIC CARCINOMA
     Dosage: 250 MG/M2, OTHER, INTRAVENOUS
     Route: 042
     Dates: start: 20060101
  2. THERAPEUTIC RADIOPHARAMCEUTICALS [Concomitant]

REACTIONS (2)
  - URINARY RETENTION [None]
  - URINE OUTPUT DECREASED [None]
